FAERS Safety Report 6573582-1 (Version None)
Quarter: 2010Q1

REPORT INFORMATION
  Report Type: 
  Country: None (occurrence: None)
  Receive Date: 20100208
  Receipt Date: 20100121
  Transmission Date: 20100710
  Serious: No
  Sender: FDA-Public Use
  Company Number: US-JNJFOC-20100110327

PATIENT
  Sex: Female
  Weight: 83.92 kg

DRUGS (3)
  1. DURAGESIC-100 [Suspect]
     Indication: BACK PAIN
     Route: 062
  2. DURAGESIC-100 [Suspect]
     Route: 062
  3. UNKNOWN MEDICATION [Concomitant]
     Route: 065

REACTIONS (1)
  - DRUG ADMINISTERED AT INAPPROPRIATE SITE [None]
